FAERS Safety Report 4875848-X (Version None)
Quarter: 2006Q1

REPORT INFORMATION
  Report Type: 
  Country: None (occurrence: None)
  Receive Date: 20060109
  Receipt Date: 20050829
  Transmission Date: 20060701
  Serious: Yes (Other)
  Sender: FDA-Public Use
  Company Number: US-MERCK-0508USA04686

PATIENT
  Age: 77 Year
  Sex: Female
  Weight: 92 kg

DRUGS (3)
  1. VIOXX [Suspect]
     Indication: ARTHRALGIA
     Route: 048
     Dates: start: 20010101, end: 20020101
  2. TYLENOL [Concomitant]
     Route: 065
     Dates: start: 20020318
  3. EXTRA STRENGTH TYLENOL [Concomitant]
     Route: 065
     Dates: start: 20021104

REACTIONS (1)
  - CEREBROVASCULAR ACCIDENT [None]
